FAERS Safety Report 4942508-6 (Version None)
Quarter: 2006Q1

REPORT INFORMATION
  Report Type: 
  Country: None (occurrence: None)
  Receive Date: 20060313
  Receipt Date: 20050324
  Transmission Date: 20060701
  Serious: No
  Sender: FDA-Public Use
  Company Number: US-GLAXOSMITHKLINE-A0551185A

PATIENT
  Age: 30 Year
  Sex: Female

DRUGS (1)
  1. EQUATE NICOTINE GUM 2MG, MINT [Suspect]
     Dates: end: 20050324

REACTIONS (1)
  - HEADACHE [None]
